FAERS Safety Report 5702467-5 (Version None)
Quarter: 2008Q2

REPORT INFORMATION
  Report Type: 
  Country: None (occurrence: None)
  Receive Date: 20080411
  Receipt Date: 20080407
  Transmission Date: 20081010
  Serious: Yes (Death)
  Sender: FDA-Public Use
  Company Number: FR-BRISTOL-MYERS SQUIBB COMPANY-14140321

PATIENT
  Age: 67 Year
  Sex: Male

DRUGS (6)
  1. COAPROVEL FILM-COATED TABS 300/12.5 MG [Suspect]
     Dosage: 1 DOSAGE FORM=300/12.5MG
     Dates: end: 20070827
  2. SODIUM PAMIDRONATE [Suspect]
     Dosage: GIVEN ON 22,23 AND 25-AUG-2007
     Route: 042
     Dates: start: 20070822
  3. TENORMIN [Concomitant]
  4. FENOFIBRATE [Concomitant]
     Dates: end: 20070823
  5. PERMIXON [Concomitant]
     Dates: end: 20070823
  6. OFLOCET [Concomitant]
     Route: 042
     Dates: start: 20070823

REACTIONS (1)
  - RENAL FAILURE ACUTE [None]
